FAERS Safety Report 23673284 (Version 1)
Quarter: 2024Q1

REPORT INFORMATION
  Report Type: Spontaneous
  Country: GB (occurrence: GB)
  Receive Date: 20240326
  Receipt Date: 20240326
  Transmission Date: 20240410
  Serious: Yes (Hospitalization)
  Sender: FDA-Public Use
  Company Number: GB-ROCHE-3098285

PATIENT
  Age: 69 Year
  Sex: Female
  Weight: 86 kg

DRUGS (28)
  1. CARBOPLATIN [Suspect]
     Active Substance: CARBOPLATIN
     Indication: Small cell lung cancer extensive stage
     Dosage: DOSAGE TEXT: UNIT DOSE: 700MG
     Route: 065
     Dates: start: 20201215
  2. ATEZOLIZUMAB [Suspect]
     Active Substance: ATEZOLIZUMAB
     Indication: Small cell lung cancer extensive stage
     Dosage: DOSAGE TEXT: UNIT DOSE: 1200MG
     Route: 041
     Dates: start: 20210121
  3. ATEZOLIZUMAB [Suspect]
     Active Substance: ATEZOLIZUMAB
     Indication: Small cell lung cancer extensive stage
     Dosage: DOSAGE TEXT: UNIT DOSE: 1200MG, FREQUENCY TIME: EVERY 3 WEEKS, ON 21/JAN/2021,11/FEB/2021, 25/MAR...
     Route: 042
     Dates: start: 20201231
  4. AMITRIPTYLINE [Concomitant]
     Active Substance: AMITRIPTYLINE
     Indication: Product used for unknown indication
     Dosage: DOSAGE TEXT: UNIT DOSE: 100MG, FREQUENCY TIME: 1 DAYS
  5. AMLODIPINE [Concomitant]
     Active Substance: AMLODIPINE BESYLATE
     Indication: Product used for unknown indication
     Dosage: DOSAGE TEXT: FREQUENCY TIME: 1 DAYS, DURATION:13 YEARS
     Dates: start: 20071102, end: 20210410
  6. ASPIRIN [Concomitant]
     Active Substance: ASPIRIN
     Indication: Product used for unknown indication
     Dosage: DOSAGE TEXT: UNIT DOSE: 75MG, FREQUENCY TIME: 1 DAYS, DURATION:13 YEARS
     Dates: start: 20070928, end: 20210410
  7. BISOPROLOL [Concomitant]
     Active Substance: BISOPROLOL\BISOPROLOL FUMARATE
     Indication: Product used for unknown indication
     Dosage: DOSAGE TEXT: UNIT DOSE: 10MG, FREQUENCY TIME: 1 DAYS, DURATION:14 YEARS
     Dates: start: 20061103, end: 20210410
  8. CLARITHROMYCIN [Concomitant]
     Active Substance: CLARITHROMYCIN
     Indication: Pneumonia
     Dosage: DOSAGE TEXT: FREQUENCY TIME: 0.5 DAYS, DURATION: 7 DAYS
     Dates: start: 20210308, end: 20210315
  9. DIHYDROCODEINE [Concomitant]
     Active Substance: DIHYDROCODEINE
     Indication: Pain
     Dosage: DOSAGE TEXT: 30-60 MG; FREQUENCY TIME:0.25 DAYS, DURATION: 54 DAYS
     Dates: start: 20210215, end: 20210410
  10. BUTYLSCOPOLAMINE BROMIDE [Concomitant]
     Active Substance: BUTYLSCOPOLAMINE BROMIDE
     Indication: Product used for unknown indication
     Dosage: DOSE: 20 MG/1 ML; ;
     Dates: start: 20210410, end: 20210410
  11. BUTYLSCOPOLAMINE BROMIDE [Concomitant]
     Active Substance: BUTYLSCOPOLAMINE BROMIDE
     Indication: Product used for unknown indication
     Dosage: DOSAGE TEXT: 200 MG/ML; DURATION: 1 DAYS
     Dates: start: 20210410, end: 20210410
  12. LEVOTHYROXINE [Concomitant]
     Active Substance: LEVOTHYROXINE\LEVOTHYROXINE SODIUM
     Indication: Product used for unknown indication
     Dosage: DOSAGE TEXT: 75MCG; FREQUENCY TIME: 1 DAYS, DURATION: 10 YEARS
     Dates: start: 20110705, end: 20210410
  13. OXYCODONE [Concomitant]
     Active Substance: OXYCODONE\OXYCODONE HYDROCHLORIDE
     Indication: Pain
     Dosage: DOSAGE TEXT: 10 MG/ML; DURATION: 1 DAYS
     Dates: start: 20210410, end: 20210410
  14. ACETAMINOPHEN [Concomitant]
     Active Substance: ACETAMINOPHEN
     Indication: Pain
     Dosage: UNK UNK, (NUMBER OF UNITS IN THE INTERVAL: .25)
     Dates: start: 20210126, end: 20210216
  15. ACETAMINOPHEN [Concomitant]
     Active Substance: ACETAMINOPHEN
     Indication: Pain
     Dosage: DOSAGE TEXT: FREQUENCY TIME: 0.25 DAYS,  DURATION: 21 DAYS
     Dates: start: 20210126, end: 20210216
  16. ETOPOSIDE [Suspect]
     Active Substance: ETOPOSIDE
     Indication: Small cell lung cancer extensive stage
     Dosage: DOSAGE TEXT: UNIT DOSE: 230MG
     Route: 042
     Dates: start: 20201215
  17. ETOPOSIDE [Suspect]
     Active Substance: ETOPOSIDE
     Indication: Small cell lung cancer extensive stage
     Route: 048
     Dates: start: 20210122
  18. ETOPOSIDE [Suspect]
     Active Substance: ETOPOSIDE
     Indication: Small cell lung cancer extensive stage
     Dosage: UNK, (NUMBER OF UNITS IN THE INTERVAL: .5)
     Route: 048
     Dates: start: 20210212, end: 20210213
  19. DEXAMETHASONE [Concomitant]
     Active Substance: DEXAMETHASONE
     Indication: Product used for unknown indication
     Dosage: DOSAGE TEXT: UNIT DOSE : 8MG, DURATION: 1 DAYS
     Route: 065
     Dates: start: 20210211, end: 20210211
  20. DEXAMETHASONE [Concomitant]
     Active Substance: DEXAMETHASONE
     Indication: Product used for unknown indication
     Dosage: DOSAGE TEXT: UNIT DOSE : 8MG, DURATION: 1 DAYS
     Route: 065
     Dates: start: 20201231, end: 20201231
  21. DEXAMETHASONE [Concomitant]
     Active Substance: DEXAMETHASONE
     Indication: Product used for unknown indication
     Dosage: DOSAGE TEXT: UNIT DOSE : 8MG, DURATION: 1 DAYS
     Route: 065
     Dates: start: 20210121, end: 20210121
  22. LEVOFLOXACIN [Concomitant]
     Active Substance: LEVOFLOXACIN
     Indication: Product used for unknown indication
     Dosage: DOSAGE TEXT: FREQUENCY: 0.5DAY, DURATION: 6 DAYS
     Route: 065
     Dates: start: 20210125, end: 20210130
  23. ONDANSETRON [Concomitant]
     Active Substance: ONDANSETRON
     Indication: Product used for unknown indication
     Dosage: DOSAGE TEXT: UNIT DOSE:8MG, DURATION: 1DAYS
     Route: 065
     Dates: start: 20210121, end: 20210121
  24. ONDANSETRON [Concomitant]
     Active Substance: ONDANSETRON
     Indication: Product used for unknown indication
     Dosage: DOSAGE TEXT: UNIT DOSE: 8MG, DURATION: 1DAYS
     Route: 065
     Dates: start: 20210211, end: 20210211
  25. ONDANSETRON [Concomitant]
     Active Substance: ONDANSETRON
     Indication: Product used for unknown indication
     Dosage: DOSAGE TEXT: UNIT DOSE:8MG, DURATION: 1DAYS
     Route: 065
     Dates: start: 20201231, end: 20201231
  26. METOCLOPRAMIDE [Concomitant]
     Active Substance: METOCLOPRAMIDE
     Indication: Product used for unknown indication
     Route: 065
     Dates: start: 20210121
  27. ETOPOSIDE [Suspect]
     Active Substance: ETOPOSIDE
     Indication: Small cell lung cancer extensive stage
     Dosage: DOSAGE TEXT: UNIT DOSE: 400MG
     Route: 048
     Dates: start: 20210122
  28. ETOPOSIDE [Suspect]
     Active Substance: ETOPOSIDE
     Indication: Small cell lung cancer extensive stage
     Dosage: DOSAGE TEXT: FREQUENCY: 0.5 DAYS, DURATION: 1 DAYS
     Route: 048
     Dates: start: 20210212, end: 20210213

REACTIONS (8)
  - Pneumonia [Recovered/Resolved]
  - Fatigue [Not Recovered/Not Resolved]
  - Nausea [Recovered/Resolved]
  - Alopecia [Not Recovered/Not Resolved]
  - Dyspnoea [Not Recovered/Not Resolved]
  - Anaemia [Not Recovered/Not Resolved]
  - Blood alkaline phosphatase increased [Not Recovered/Not Resolved]
  - Alanine aminotransferase increased [Not Recovered/Not Resolved]

NARRATIVE: CASE EVENT DATE: 20210121
